FAERS Safety Report 6763527-3 (Version None)
Quarter: 2010Q2

REPORT INFORMATION
  Report Type: 
  Country: None (occurrence: None)
  Receive Date: 20100610
  Receipt Date: 20100527
  Transmission Date: 20101027
  Serious: Yes (Other)
  Sender: FDA-Public Use
  Company Number: PHHY2010AT31700

PATIENT
  Age: 43 Year
  Sex: Male

DRUGS (5)
  1. CLOZAPINE [Suspect]
     Indication: BIPOLAR DISORDER
     Dosage: 300-400 MG / DAY
  2. CLOZAPINE [Suspect]
     Dosage: 350 MG / DAY
     Route: 048
  3. CLOZAPINE [Suspect]
     Dosage: 100 MG / DAY
     Route: 048
  4. LAMOTRIGINE [Suspect]
     Dosage: 50 MG / DAY
  5. LORAZEPAM [Concomitant]
     Dosage: 2-3.5 MG / DAY

REACTIONS (10)
  - ANTIPSYCHOTIC DRUG LEVEL BELOW THERAPEUTIC [None]
  - ANTIPSYCHOTIC DRUG LEVEL INCREASED [None]
  - BODY TEMPERATURE INCREASED [None]
  - C-REACTIVE PROTEIN INCREASED [None]
  - DEPRESSION [None]
  - DISORIENTATION [None]
  - DIZZINESS [None]
  - DRUG TOXICITY [None]
  - RASH [None]
  - UPPER RESPIRATORY TRACT INFECTION [None]
